FAERS Safety Report 5575947-3 (Version None)
Quarter: 2007Q4

REPORT INFORMATION
  Report Type: 
  Country: None (occurrence: None)
  Receive Date: 20071226
  Receipt Date: 20071123
  Transmission Date: 20080405
  Serious: Yes (Hospitalization)
  Sender: FDA-Public Use
  Company Number: DSM-2007-01018

PATIENT
  Age: 78 Year
  Sex: Male

DRUGS (5)
  1. OLMESARTAN MEDOXOMIL [Suspect]
     Indication: HYPERTENSION
     Dosage: 20 MG (20 MG, 1 IN 1 D)
  2. MONO-TILDIEM (DILTIAZEM HYDROCHLORIDE) (300 MILLIGRAM, CAPSULE) (DILTI [Suspect]
     Dosage: 300 MG (300 MG, 1 IN 1 D), ORAL
     Route: 048
  3. ALDALIX (SPIRONOLACTONE, FUROSEMIDE) (SPIRONOLACTONE, FUROSEMIDE) [Suspect]
     Dosage: 50MG/20MG (1 IN 1 D), ORAL
     Route: 048
     Dates: end: 20071103
  4. TAHOR (ATORVASTATIN CALCIUM) (TABLET) (ATORVASTATIN CALCIUM) [Suspect]
     Dosage: ORAL
     Route: 048
  5. HYPERIUM (RILMENIDINE) (TABLET) (RILMENIDINE) [Suspect]
     Indication: HYPERTENSION
     Dosage: 1 MG, ORAL
     Route: 048

REACTIONS (6)
  - ASTHENIA [None]
  - BRADYCARDIA [None]
  - DEHYDRATION [None]
  - DIARRHOEA [None]
  - HYPERKALAEMIA [None]
  - RENAL FAILURE [None]
